FAERS Safety Report 16658125 (Version 1)
Quarter: 2019Q3

REPORT INFORMATION
  Report Type: Spontaneous
  Country: US (occurrence: US)
  Receive Date: 20190801
  Receipt Date: 20190801
  Transmission Date: 20191004
  Serious: Yes (Other)
  Sender: FDA-Public Use
  Company Number: US-SHIRE-US201924362

PATIENT
  Age: 72 Year
  Sex: Male

DRUGS (17)
  1. ASPIRIN (E.C.) [Concomitant]
     Active Substance: ASPIRIN
     Indication: PRODUCT USED FOR UNKNOWN INDICATION
  2. AZATHIOPRINE. [Concomitant]
     Active Substance: AZATHIOPRINE
     Indication: ACQUIRED HAEMOPHILIA
  3. FEIBA NF [Concomitant]
     Active Substance: ANTI-INHIBITOR COAGULANT COMPLEX
     Indication: ACQUIRED HAEMOPHILIA
  4. BIVALIRUDIN. [Concomitant]
     Active Substance: BIVALIRUDIN
     Indication: ANTICOAGULANT THERAPY
  5. MYCOPHENOLATE [Concomitant]
     Active Substance: MYCOPHENOLIC ACID
     Indication: ACQUIRED HAEMOPHILIA
  6. TACROLIMUS. [Concomitant]
     Active Substance: TACROLIMUS
     Indication: ACQUIRED HAEMOPHILIA
  7. EMICIZUMAB. [Concomitant]
     Active Substance: EMICIZUMAB
     Indication: ACQUIRED HAEMOPHILIA
  8. CLOPIDOGREL [Concomitant]
     Active Substance: CLOPIDOGREL BISULFATE
     Indication: PRODUCT USED FOR UNKNOWN INDICATION
  9. OBIZUR [Suspect]
     Active Substance: ANTIHEMOPHILIC FACTOR PORCINE, B-DOMAIN TRUNCATED RECOMBINANT
     Indication: ACQUIRED HAEMOPHILIA
     Dosage: 300 INTERNATIONAL UNIT/KILOGRAM
     Route: 065
  10. BORTEZOMIB. [Concomitant]
     Active Substance: BORTEZOMIB
     Indication: ACQUIRED HAEMOPHILIA
  11. CYCLOSPORINE. [Concomitant]
     Active Substance: CYCLOSPORINE
     Indication: ACQUIRED HAEMOPHILIA
  12. HUMAN NORMAL IMMUNOGLOBULIN [Concomitant]
     Active Substance: HUMAN IMMUNOGLOBULIN G
     Indication: PRODUCT USED FOR UNKNOWN INDICATION
  13. EMICIZUMAB. [Concomitant]
     Active Substance: EMICIZUMAB
     Indication: PERCUTANEOUS CORONARY INTERVENTION
  14. CYCLOPHOSPHAMIDE. [Concomitant]
     Active Substance: CYCLOPHOSPHAMIDE
     Indication: ACQUIRED HAEMOPHILIA
  15. OBIZUR [Suspect]
     Active Substance: ANTIHEMOPHILIC FACTOR PORCINE, B-DOMAIN TRUNCATED RECOMBINANT
     Indication: PERCUTANEOUS CORONARY INTERVENTION
  16. RITUXIMAB. [Concomitant]
     Active Substance: RITUXIMAB
     Indication: ACQUIRED HAEMOPHILIA
  17. CLADRIBINE. [Concomitant]
     Active Substance: CLADRIBINE
     Indication: ACQUIRED HAEMOPHILIA

REACTIONS (2)
  - Factor VIII inhibition [Not Recovered/Not Resolved]
  - Therapeutic response decreased [Unknown]
